FAERS Safety Report 7167063-4 (Version None)
Quarter: 2010Q4

REPORT INFORMATION
  Report Type: 
  Country: None (occurrence: None)
  Receive Date: 20101216
  Receipt Date: 20101213
  Transmission Date: 20110411
  Serious: Yes (Other)
  Sender: FDA-Public Use
  Company Number: US-BAYER-2010-004846

PATIENT
  Sex: Female

DRUGS (2)
  1. YAZ [Suspect]
     Dosage: UNK
     Dates: start: 20070401
  2. YASMIN [Suspect]
     Dosage: UNK
     Dates: start: 20070401

REACTIONS (2)
  - INTRACRANIAL VENOUS SINUS THROMBOSIS [None]
  - PAIN [None]
